FAERS Safety Report 19313009 (Version 1)
Quarter: 2021Q2

REPORT INFORMATION
  Report Type: Report from Study
  Country: US (occurrence: US)
  Receive Date: 20210527
  Receipt Date: 20210527
  Transmission Date: 20210717
  Serious: Yes (Hospitalization)
  Sender: FDA-Public Use
  Company Number: US-TAIHO ONCOLOGY  INC-EU-2021-01559

PATIENT
  Age: 39 Year
  Sex: Male

DRUGS (6)
  1. XTAMPZA [Concomitant]
     Active Substance: OXYCODONE
  2. GABAPENTIN. [Concomitant]
     Active Substance: GABAPENTIN
  3. TADALAFIL. [Concomitant]
     Active Substance: TADALAFIL
  4. LONSURF [Suspect]
     Active Substance: TIPIRACIL HYDROCHLORIDE\TRIFLURIDINE
     Indication: COLON CANCER
     Dosage: CYCLE UNKNOWN
     Route: 048
     Dates: start: 20210311
  5. ELIQUIS [Concomitant]
     Active Substance: APIXABAN
  6. OXYCODONE [Concomitant]
     Active Substance: OXYCODONE

REACTIONS (3)
  - Feeding disorder [Not Recovered/Not Resolved]
  - Product dose omission issue [Unknown]
  - Dyskinesia [Not Recovered/Not Resolved]
